FAERS Safety Report 5371444-9 (Version None)
Quarter: 2007Q2

REPORT INFORMATION
  Report Type: 
  Country: None (occurrence: None)
  Receive Date: 20070622
  Receipt Date: 20070611
  Transmission Date: 20071010
  Serious: Yes (Other)
  Sender: FDA-Public Use
  Company Number: 2007SP011964

PATIENT
  Age: 41 Year
  Sex: Female

DRUGS (2)
  1. CLARITIN [Suspect]
     Indication: COUGH
     Dosage: 1 DF; QD; PO
     Route: 048
     Dates: start: 20070607, end: 20070608
  2. CLARITIN [Suspect]
     Indication: NASAL CONGESTION
     Dosage: 1 DF; QD; PO
     Route: 048
     Dates: start: 20070607, end: 20070608

REACTIONS (5)
  - DRUG HYPERSENSITIVITY [None]
  - FACE OEDEMA [None]
  - HEADACHE [None]
  - JOINT SWELLING [None]
  - OEDEMA PERIPHERAL [None]
